FAERS Safety Report 10651278 (Version 2)
Quarter: 2014Q4

REPORT INFORMATION
  Report Type: Report from Study
  Country: FR (occurrence: None)
  Receive Date: 20141210
  Receipt Date: 20141224
  Transmission Date: 20150529
  Serious: Yes (Life-Threatening, Hospitalization)
  Sender: FDA-Public Use
  Company Number: FR-20140391

PATIENT
  Age: 81 Year
  Sex: Male

DRUGS (1)
  1. DOTAREM [Suspect]
     Active Substance: GADOTERATE MEGLUMINE
     Indication: NUCLEAR MAGNETIC RESONANCE IMAGING
     Dosage: 20 MG (20 ML, 1 IN1 D) INTRAVEVOUS (NOT OTHERWISE SPECIFIED)?
     Route: 042
     Dates: start: 20141127, end: 20141127

REACTIONS (9)
  - Cardiac arrest [None]
  - Renal failure [None]
  - Coma [None]
  - Type IV hypersensitivity reaction [None]
  - Hyperhidrosis [None]
  - Tongue biting [None]
  - Anaphylactic shock [None]
  - Seizure [None]
  - Prerenal failure [None]

NARRATIVE: CASE EVENT DATE: 20141127
